FAERS Safety Report 7963488-5 (Version None)
Quarter: 2011Q4

REPORT INFORMATION
  Report Type: 
  Country: None (occurrence: None)
  Receive Date: 20111205
  Receipt Date: 20111201
  Transmission Date: 20120403
  Serious: Yes (Disabling, Other)
  Sender: FDA-Public Use
  Company Number: ZYD-11-AE-257

PATIENT
  Age: 59 Year
  Sex: Male

DRUGS (2)
  1. SYNTHROID [Concomitant]
  2. PAROXETINE HCL [Suspect]
     Indication: ANXIETY
     Dosage: 20MG - DAILY - ORAL, DECREASED
     Route: 048

REACTIONS (9)
  - ARTHRALGIA [None]
  - CHEST PAIN [None]
  - PRODUCT SUBSTITUTION ISSUE [None]
  - GAIT DISTURBANCE [None]
  - HYPOAESTHESIA [None]
  - PYREXIA [None]
  - MYALGIA [None]
  - MUSCULAR WEAKNESS [None]
  - HYPERHIDROSIS [None]
